FAERS Safety Report 6072900-0 (Version None)
Quarter: 2009Q1

REPORT INFORMATION
  Report Type: 
  Country: None (occurrence: None)
  Receive Date: 20090205
  Receipt Date: 20090126
  Transmission Date: 20090719
  Serious: Yes (Death, Hospitalization, Other)
  Sender: FDA-Public Use
  Company Number: STI-2009-00141

PATIENT
  Age: 75 Year
  Sex: Male

DRUGS (8)
  1. CLINDAMYCIN HCL [Suspect]
  2. GALVUS (VILDAGLIPTIN) [Suspect]
     Indication: TYPE 2 DIABETES MELLITUS
     Dosage: 100 MG (50 MG,2 IN 1 DAYS) ORAL
     Route: 048
     Dates: start: 20081211, end: 20081219
  3. ASPIRIN [Concomitant]
  4. CARBIMAZOLE (CARBIMAZOLE) [Concomitant]
  5. GLICLAZIDE (GLICLAZIDE) [Concomitant]
  6. METFORMIN HCL [Concomitant]
  7. ROSUVASTATIN CALCIUM [Concomitant]
  8. CLARITHROMYCIN [Concomitant]

REACTIONS (6)
  - CALCINOSIS [None]
  - CARDIAC ARREST [None]
  - HYDRONEPHROSIS [None]
  - LETHARGY [None]
  - RENAL FAILURE ACUTE [None]
  - SWELLING FACE [None]
